FAERS Safety Report 7362153-5 (Version None)
Quarter: 2011Q1

REPORT INFORMATION
  Report Type: 
  Country: None (occurrence: None)
  Receive Date: 20110318
  Receipt Date: 20110307
  Transmission Date: 20110831
  Serious: Yes (Hospitalization)
  Sender: FDA-Public Use
  Company Number: NL-MEDIMMUNE-MEDI-0012809

PATIENT
  Sex: Female
  Weight: 3.8 kg

DRUGS (2)
  1. SYNAGIS [Suspect]
     Route: 030
     Dates: start: 20110304, end: 20110304
  2. SYNAGIS [Suspect]
     Route: 030
     Dates: start: 20110203, end: 20110203

REACTIONS (6)
  - UNDERWEIGHT [None]
  - INFANTILE SPITTING UP [None]
  - PYREXIA [None]
  - VOMITING [None]
  - MALAISE [None]
  - ASTHENIA [None]
